FAERS Safety Report 7208685-1 (Version None)
Quarter: 2011Q1

REPORT INFORMATION
  Report Type: 
  Country: None (occurrence: None)
  Receive Date: 20110104
  Receipt Date: 20101230
  Transmission Date: 20110831
  Serious: No
  Sender: FDA-Public Use
  Company Number: US-PFIZER INC-2010182412

PATIENT
  Sex: Male

DRUGS (1)
  1. DEPO-ESTRADIOL [Suspect]
     Indication: OFF LABEL USE

REACTIONS (2)
  - HEADACHE [None]
  - BONE PAIN [None]
